FAERS Safety Report 24905860 (Version 1)
Quarter: 2025Q1

REPORT INFORMATION
  Report Type: Spontaneous
  Country: CA (occurrence: CA)
  Receive Date: 20250130
  Receipt Date: 20250130
  Transmission Date: 20250408
  Serious: Yes (Other)
  Sender: AMGEN
  Company Number: CA-AMGEN-CANSP2025016268

PATIENT
  Sex: Female

DRUGS (5)
  1. VECTIBIX [Suspect]
     Active Substance: PANITUMUMAB
     Indication: Product used for unknown indication
     Route: 065
  2. VECTIBIX [Suspect]
     Active Substance: PANITUMUMAB
     Route: 065
     Dates: start: 202410
  3. LEUCOVORIN [Concomitant]
     Active Substance: LEUCOVORIN\LEUCOVORIN CALCIUM
  4. FLUOROURACIL [Concomitant]
     Active Substance: FLUOROURACIL
  5. OXALIPLATIN [Concomitant]
     Active Substance: OXALIPLATIN

REACTIONS (16)
  - Colorectal cancer metastatic [Unknown]
  - Metastases to lung [Unknown]
  - Hair growth abnormal [Unknown]
  - Glossodynia [Unknown]
  - Ageusia [Unknown]
  - Anosmia [Unknown]
  - Skin disorder [Unknown]
  - Nail bed bleeding [Unknown]
  - Tooth discolouration [Unknown]
  - Upper-airway cough syndrome [Unknown]
  - Nail bed bleeding [Unknown]
  - Hair growth abnormal [Unknown]
  - Hair growth abnormal [Unknown]
  - Skin disorder [Unknown]
  - Tooth discolouration [Unknown]
  - Glossodynia [Unknown]

NARRATIVE: CASE EVENT DATE: 20240101
